FAERS Safety Report 9489959 (Version 1)
Quarter: 2013Q3

REPORT INFORMATION
  Report Type: Spontaneous
  Country: US (occurrence: US)
  Receive Date: 20130829
  Receipt Date: 20130829
  Transmission Date: 20140515
  Serious: Yes (Death, Hospitalization)
  Sender: FDA-Public Use
  Company Number: US-B.I. PHARMACEUTICALS,INC./RIDGEFIELD-2013-BI-26679BP

PATIENT
  Sex: Female

DRUGS (1)
  1. PRADAXA [Suspect]
     Dates: start: 20110102

REACTIONS (6)
  - Gastrointestinal haemorrhage [Fatal]
  - Gastrointestinal haemorrhage [Unknown]
  - Anal ulcer [Unknown]
  - Escherichia urinary tract infection [Unknown]
  - Constipation [Unknown]
  - Rectal ulcer [Unknown]
